FAERS Safety Report 4749701-6 (Version None)
Quarter: 2005Q3

REPORT INFORMATION
  Report Type: 
  Country: None (occurrence: None)
  Receive Date: 20050822
  Receipt Date: 20041027
  Transmission Date: 20060218
  Serious: Yes (Hospitalization, Disabling)
  Sender: FDA-Public Use
  Company Number: US-ROCHE-384554

PATIENT
  Age: 20 Year
  Sex: Female
  Weight: 65.8 kg

DRUGS (3)
  1. ACCUTANE [Suspect]
     Dosage: DOSAGE REGIMEN: EVERY DAY
     Route: 048
     Dates: start: 19991206, end: 20000515
  2. MINOCYCLINE [Concomitant]
     Route: 048
     Dates: start: 19991206
  3. ORTHO CYCLEN-28 [Concomitant]
     Dosage: DRUG NAME REPORTED AS ORTHO TRI-CYCLEN
     Route: 048

REACTIONS (28)
  - ANAEMIA [None]
  - ANXIETY [None]
  - BACK DISORDER [None]
  - COLITIS [None]
  - COLITIS ULCERATIVE [None]
  - CROHN'S DISEASE [None]
  - DEHYDRATION [None]
  - DEPRESSION [None]
  - DRUG EXPOSURE DURING PREGNANCY [None]
  - DRUG HYPERSENSITIVITY [None]
  - DRUG INEFFECTIVE [None]
  - DRY SKIN [None]
  - ECZEMA [None]
  - ESCHERICHIA URINARY TRACT INFECTION [None]
  - FALL [None]
  - GASTROINTESTINAL DISORDER [None]
  - GESTATIONAL DIABETES [None]
  - INFLAMMATORY BOWEL DISEASE [None]
  - INTERNAL INJURY [None]
  - INTESTINAL HAEMORRHAGE [None]
  - MULTI-ORGAN DISORDER [None]
  - OVARIAN CYST [None]
  - PREGNANCY [None]
  - RECTAL HAEMORRHAGE [None]
  - REFUSAL OF TREATMENT BY PATIENT [None]
  - TENDERNESS [None]
  - VENOUS THROMBOSIS [None]
  - WEIGHT DECREASED [None]
